FAERS Safety Report 5940881-3 (Version None)
Quarter: 2008Q4

REPORT INFORMATION
  Report Type: 
  Country: None (occurrence: None)
  Receive Date: 20081104
  Receipt Date: 20080930
  Transmission Date: 20090506
  Serious: Yes (Other)
  Sender: FDA-Public Use
  Company Number: US-ASTRAZENECA-2008AP07815

PATIENT
  Age: 60 Year
  Sex: Male
  Weight: 117.9 kg

DRUGS (7)
  1. ZESTORETIC [Suspect]
  2. TOPROL-XL [Suspect]
     Route: 048
  3. LORCET-HD [Suspect]
  4. IBUPROFEN TABLETS [Suspect]
  5. CELEBREX [Suspect]
  6. LIPITOR [Suspect]
  7. CORTISONE [Suspect]

REACTIONS (5)
  - ARTHRALGIA [None]
  - BACK PAIN [None]
  - HYPOAESTHESIA [None]
  - MUSCLE SPASMS [None]
  - PAIN IN EXTREMITY [None]
